FAERS Safety Report 9210495 (Version 2)
Quarter: 2013Q4

REPORT INFORMATION
  Report Type: Spontaneous
  Country: US (occurrence: US)
  Receive Date: 20130404
  Receipt Date: 20131223
  Transmission Date: 20140711
  Serious: Yes (Other)
  Sender: FDA-Public Use
  Company Number: US-BAYER-2013-041211

PATIENT
  Age: 28 Year
  Sex: Female

DRUGS (10)
  1. YAZ [Suspect]
     Indication: CONTRACEPTION
     Dosage: UNK
     Route: 048
     Dates: start: 2006, end: 201202
  2. YAZ [Suspect]
     Indication: MENSTRUATION IRREGULAR
  3. YASMIN [Suspect]
     Indication: CONTRACEPTION
     Dosage: UNK
     Route: 048
     Dates: start: 2006, end: 201202
  4. YASMIN [Suspect]
     Indication: MENSTRUATION IRREGULAR
  5. OCELLA [Suspect]
     Dosage: UNK
     Route: 048
     Dates: start: 2006, end: 201202
  6. BEYAZ [Suspect]
     Indication: CONTRACEPTION
     Dosage: UNK
     Route: 048
     Dates: start: 2006, end: 201202
  7. BEYAZ [Suspect]
     Indication: MENSTRUATION IRREGULAR
  8. AMOXICILLIN [Concomitant]
  9. OMEPRAZOLE [Concomitant]
  10. ZOFRAN [Concomitant]

REACTIONS (8)
  - Cholecystectomy [None]
  - Cholecystitis chronic [None]
  - Injury [None]
  - Pain [None]
  - Emotional distress [None]
  - Anxiety [None]
  - Psychological trauma [None]
  - Fear of disease [None]
